FAERS Safety Report 5388930-8 (Version None)
Quarter: 2007Q3

REPORT INFORMATION
  Report Type: 
  Country: None (occurrence: None)
  Receive Date: 20070717
  Receipt Date: 20070710
  Transmission Date: 20080115
  Serious: Yes (Hospitalization)
  Sender: FDA-Public Use
  Company Number: PHNU2007DE02460

PATIENT
  Age: 66 Year
  Sex: Female

DRUGS (3)
  1. LOCOL [Suspect]
     Indication: HYPERCHOLESTEROLAEMIA
     Dosage: 80 MG, QD
     Route: 048
     Dates: start: 20070101
  2. RAMIPRIL [Concomitant]
     Indication: HYPERTENSION
  3. BELOC ZOK [Concomitant]
     Indication: HYPERTENSION

REACTIONS (4)
  - BILIARY COLIC [None]
  - DIARRHOEA [None]
  - DRUG ADMINISTRATION ERROR [None]
  - VOMITING [None]
